FAERS Safety Report 6054002-2 (Version None)
Quarter: 2009Q1

REPORT INFORMATION
  Report Type: 
  Country: None (occurrence: None)
  Receive Date: 20090127
  Receipt Date: 20090114
  Transmission Date: 20090719
  Serious: Yes (Other)
  Sender: FDA-Public Use
  Company Number: TR-WYE-H07711709

PATIENT
  Sex: Female

DRUGS (6)
  1. TAZOCIN [Suspect]
     Indication: NOSOCOMIAL INFECTION
     Route: 042
     Dates: start: 20081223, end: 20081230
  2. TAZOCIN [Suspect]
     Indication: URINARY TRACT INFECTION
  3. LASIX [Concomitant]
     Indication: CARDIAC FAILURE CONGESTIVE
     Dosage: UNKNOWN
     Dates: start: 20081229
  4. COUMADIN [Concomitant]
     Indication: PULMONARY EMBOLISM
     Dosage: 5 MG TABLET (FREQUENCY UNKNOWN)
  5. DUPHALAC [Concomitant]
     Indication: CONSTIPATION
     Dosage: UNKNOWN
  6. DICLOFENAC [Concomitant]
     Indication: PAIN
     Dosage: UNKNOWN

REACTIONS (4)
  - DYSPNOEA [None]
  - MUSCLE CONTRACTIONS INVOLUNTARY [None]
  - TACHYCARDIA [None]
  - TREMOR [None]
